FAERS Safety Report 5108517-1 (Version None)
Quarter: 2006Q3

REPORT INFORMATION
  Report Type: 
  Country: None (occurrence: None)
  Receive Date: 20060731
  Receipt Date: 20060510
  Transmission Date: 20061208
  Serious: No
  Sender: FDA-Public Use
  Company Number: 2006PV013583

PATIENT
  Age: 64 Year
  Sex: Male

DRUGS (5)
  1. BYETTA [Suspect]
     Dosage: SEE IMAGE
     Route: 058
     Dates: start: 20050101, end: 20050101
  2. BYETTA [Suspect]
     Dosage: SEE IMAGE
     Route: 058
     Dates: start: 20050101, end: 20050101
  3. BYETTA [Suspect]
     Dosage: SEE IMAGE
     Route: 058
     Dates: start: 20050101, end: 20050101
  4. GLIPIZIDE [Concomitant]
  5. GARLIC [Concomitant]

REACTIONS (4)
  - BLOOD GLUCOSE DECREASED [None]
  - BLOOD GLUCOSE FLUCTUATION [None]
  - BLOOD GLUCOSE INCREASED [None]
  - DIZZINESS [None]
